FAERS Safety Report 7044830-9 (Version None)
Quarter: 2010Q4

REPORT INFORMATION
  Report Type: 
  Country: None (occurrence: None)
  Receive Date: 20101014
  Receipt Date: 20101005
  Transmission Date: 20110411
  Serious: Yes (Other)
  Sender: FDA-Public Use
  Company Number: US-JNJFOC-20101002282

PATIENT
  Sex: Female
  Weight: 53.52 kg

DRUGS (11)
  1. SANDOZ FENTANYL TRANSDERMAL SYSTEM [Suspect]
     Indication: PANCREATITIS
     Dosage: NDC# 0781-7244-55
     Route: 062
  2. SANDOZ FENTANYL TRANSDERMAL SYSTEM [Suspect]
     Indication: INTERVERTEBRAL DISC DEGENERATION
     Dosage: NDC# 0781-7244-55
     Route: 062
  3. OS.CAL [Concomitant]
     Indication: BONE DISORDER
     Dosage: TWICE PER DAY
     Route: 048
  4. CYMBALTA [Concomitant]
     Indication: DEPRESSION
     Route: 048
  5. CYMBALTA [Concomitant]
     Indication: BIPOLAR DISORDER
     Route: 048
  6. VITAMIN B [Concomitant]
     Dosage: TWICE PER DAY
     Route: 048
  7. FOLIC ACID [Concomitant]
     Dosage: ONCE PER DAY
     Route: 048
  8. MULTIVITAMIN [Concomitant]
     Dosage: ONCE PER DAY
     Route: 048
  9. PROMETHAZINE [Concomitant]
     Dosage: FOUR TIMES PER DAY
     Route: 048
  10. ALDACTONE [Concomitant]
     Route: 048
  11. VALIUM [Concomitant]
     Indication: PANIC ATTACK
     Route: 048

REACTIONS (5)
  - DRUG EFFECT DECREASED [None]
  - DRUG INEFFECTIVE [None]
  - MOLE EXCISION [None]
  - PRODUCT ADHESION ISSUE [None]
  - WEIGHT INCREASED [None]
